FAERS Safety Report 4773072-2 (Version None)
Quarter: 2005Q3

REPORT INFORMATION
  Report Type: 
  Country: None (occurrence: None)
  Receive Date: 20050919
  Receipt Date: 20050907
  Transmission Date: 20060218
  Serious: Yes (Hospitalization)
  Sender: FDA-Public Use
  Company Number: US-BRISTOL-MYERS SQUIBB COMPANY-13102090

PATIENT
  Age: 72 Year
  Sex: Male

DRUGS (14)
  1. CISPLATIN [Suspect]
     Indication: NEOPLASM MALIGNANT
     Route: 042
     Dates: start: 20000901, end: 20000901
  2. CETUXIMAB [Suspect]
     Indication: NEOPLASM MALIGNANT
     Route: 042
     Dates: start: 20000901, end: 20000901
  3. RADIATION THERAPY [Suspect]
     Indication: NEOPLASM MALIGNANT
     Dates: start: 20000809, end: 20000901
  4. TYLENOL W/ CODEINE [Concomitant]
     Dates: start: 20000706
  5. ROXICET [Concomitant]
     Dates: start: 20000725
  6. HYDROXYZINE [Concomitant]
     Dates: start: 20000830
  7. DECADRON [Concomitant]
     Dates: start: 20000902, end: 20000905
  8. REGLAN [Concomitant]
  9. FENTANYL [Concomitant]
     Dates: start: 20000901
  10. MORPHINE [Concomitant]
     Dates: start: 20000901
  11. COLACE [Concomitant]
     Dates: start: 20000901
  12. MILK OF MAGNESIA TAB [Concomitant]
  13. SENOKOT [Concomitant]
     Dates: start: 20000901
  14. BENADRYL [Concomitant]
     Dates: start: 20000901

REACTIONS (8)
  - BACTERIAL CULTURE POSITIVE [None]
  - COLITIS [None]
  - CONSTIPATION [None]
  - DEHYDRATION [None]
  - INFECTION [None]
  - PHLEBITIS [None]
  - PYREXIA [None]
  - VOMITING [None]
